FAERS Safety Report 11688959 (Version 1)
Quarter: 2015Q4

REPORT INFORMATION
  Report Type: Report from Study
  Country: US (occurrence: US)
  Receive Date: 20151102
  Receipt Date: 20151102
  Transmission Date: 20160304
  Serious: Yes (Hospitalization, Other)
  Sender: FDA-Public Use
  Company Number: US-AMGEN-USASL2015113658

PATIENT
  Age: 62 Year
  Sex: Female

DRUGS (15)
  1. EXJADE [Concomitant]
     Active Substance: DEFERASIROX
     Dosage: 500 MG, QD
     Route: 048
  2. LORAZEPAM. [Concomitant]
     Active Substance: LORAZEPAM
     Dosage: UNK
  3. OXYCODONE [Concomitant]
     Active Substance: OXYCODONE
     Dosage: UNK
  4. GABAPENTIN. [Concomitant]
     Active Substance: GABAPENTIN
     Dosage: UNK
  5. PROCHLORPERAZINE. [Concomitant]
     Active Substance: PROCHLORPERAZINE
     Dosage: UNK
  6. COUMADIN [Concomitant]
     Active Substance: WARFARIN SODIUM
     Dosage: 5 MG, QD
  7. AMBIEN [Concomitant]
     Active Substance: ZOLPIDEM TARTRATE
     Dosage: UNK
  8. ASCORBATE [Concomitant]
     Dosage: UNK
  9. CYCLOBENZAPRINE [Concomitant]
     Active Substance: CYCLOBENZAPRINE
     Dosage: UNK
  10. PROCRIT [Suspect]
     Active Substance: ERYTHROPOIETIN
     Indication: ANAEMIA
     Dosage: 60 UNIT, UNK
     Route: 065
  11. CYANOCOBALAMIN. [Concomitant]
     Active Substance: CYANOCOBALAMIN
     Dosage: UNK
  12. FLUTICASONE [Concomitant]
     Active Substance: FLUTICASONE\FLUTICASONE PROPIONATE
     Dosage: UNK
  13. IMITREX [Concomitant]
     Active Substance: SUMATRIPTAN\SUMATRIPTAN SUCCINATE
     Dosage: UNK
  14. VITAMIN D [Concomitant]
     Active Substance: CHOLECALCIFEROL
     Dosage: UNK
  15. POLYETHYLENE GLYCOL [Concomitant]
     Active Substance: POLYETHYLENE GLYCOLS
     Dosage: UNK

REACTIONS (16)
  - Pulmonary fibrosis [Unknown]
  - Cholecystectomy [Unknown]
  - Transfusion [Unknown]
  - Pneumonia [Unknown]
  - Pulmonary hypertension [Unknown]
  - Haematocrit decreased [Unknown]
  - Iron overload [Unknown]
  - Pulmonary embolism [Unknown]
  - Thrombocytosis [Unknown]
  - Infection [Unknown]
  - Migraine [Unknown]
  - Haemolytic anaemia [Unknown]
  - Somnolence [Unknown]
  - Leukocytosis [Unknown]
  - Serum ferritin increased [Unknown]
  - Fall [Unknown]

NARRATIVE: CASE EVENT DATE: 2014
